FAERS Safety Report 10460987 (Version 1)
Quarter: 2014Q3

REPORT INFORMATION
  Report Type: Spontaneous
  Country: US (occurrence: None)
  Receive Date: 20140917
  Receipt Date: 20140917
  Transmission Date: 20150326
  Serious: Yes (Other)
  Sender: FDA-Public Use
  Company Number: None

PATIENT
  Age: 7 Year
  Sex: Male
  Weight: 35.38 kg

DRUGS (2)
  1. QUETIAPINE [Suspect]
     Active Substance: QUETIAPINE
     Indication: ATTENTION DEFICIT/HYPERACTIVITY DISORDER
     Route: 048
     Dates: start: 20140818, end: 20140914
  2. QUETIAPINE [Suspect]
     Active Substance: QUETIAPINE
     Indication: PRODUCT USED FOR UNKNOWN INDICATION
     Route: 048
     Dates: start: 20140818, end: 20140914

REACTIONS (8)
  - Suicidal ideation [None]
  - Weight increased [None]
  - Psychomotor hyperactivity [None]
  - Elevated mood [None]
  - Frustration [None]
  - Irritability [None]
  - Aggression [None]
  - Hyperhidrosis [None]

NARRATIVE: CASE EVENT DATE: 20140915
